FAERS Safety Report 6088038-2 (Version None)
Quarter: 2009Q1

REPORT INFORMATION
  Report Type: 
  Country: None (occurrence: None)
  Receive Date: 20090218
  Receipt Date: 20090202
  Transmission Date: 20090719
  Serious: Yes (Death)
  Sender: FDA-Public Use
  Company Number: 8042772

PATIENT
  Age: 86 Year
  Sex: Female

DRUGS (5)
  1. KEPPRA [Suspect]
     Indication: CONVULSION
     Dosage: 1000 MG /D IV
     Route: 042
     Dates: start: 20081229, end: 20081230
  2. PREDNISOLONE [Suspect]
     Indication: RHEUMATOID ARTHRITIS
     Dosage: 5 MG 1/D PO
     Route: 048
     Dates: end: 20081230
  3. HYDROCHLOROTHIAZIDE [Suspect]
     Indication: HYPERTENSION
     Dosage: 12.5 MG /D PO
     Route: 048
     Dates: end: 20081230
  4. ASPIRIN [Suspect]
     Indication: CEREBROVASCULAR ACCIDENT PROPHYLAXIS
     Dates: end: 20081230
  5. VOLTAREN [Suspect]
     Indication: RHEUMATOID ARTHRITIS
     Dates: end: 20081230

REACTIONS (1)
  - CEREBRAL INFARCTION [None]
